FAERS Safety Report 22192917 (Version 1)
Quarter: 2023Q2

REPORT INFORMATION
  Report Type: Spontaneous
  Country: FR (occurrence: FR)
  Receive Date: 20230410
  Receipt Date: 20230410
  Transmission Date: 20230721
  Serious: Yes (Other)
  Sender: FDA-Public Use
  Company Number: None

PATIENT
  Sex: Female

DRUGS (2)
  1. SILDENAFIL [Suspect]
     Active Substance: SILDENAFIL
     Indication: Weight decreased
     Dosage: 1 DOSAGE FORM, QD (1 DF TREX PER DAY)
     Route: 048
  2. SIBUTRAMINE HYDROCHLORIDE MONOHYDRATE [Suspect]
     Active Substance: SIBUTRAMINE HYDROCHLORIDE
     Indication: Weight decreased
     Dosage: 1 DOSAGE FORM, QD (1 CAPSULE OF TREX CAPS/DAY)
     Route: 048

REACTIONS (4)
  - Epilepsy [Unknown]
  - Weight decreased [Unknown]
  - Tachycardia [Unknown]
  - Headache [Unknown]
